FAERS Safety Report 5052333-6 (Version None)
Quarter: 2006Q2

REPORT INFORMATION
  Report Type: 
  Country: None (occurrence: None)
  Receive Date: 20060614
  Receipt Date: 20060228
  Transmission Date: 20061013
  Serious: Yes (Other)
  Sender: FDA-Public Use
  Company Number: 438471

PATIENT
  Sex: Female

DRUGS (5)
  1. BONIVA [Suspect]
     Indication: DRUG USE FOR UNKNOWN INDICATION
     Dosage: ORAL
     Route: 048
  2. VYTORIN [Concomitant]
  3. ESTRACE [Concomitant]
  4. LEVOTHYROXINE SODIUM [Concomitant]
  5. CALCIUM/VITAMIN D (CALCIUM/ VITAMIN D NOS) [Concomitant]

REACTIONS (2)
  - ARTHRALGIA [None]
  - SHOULDER PAIN [None]
